FAERS Safety Report 4608399-8 (Version None)
Quarter: 2005Q1

REPORT INFORMATION
  Report Type: 
  Country: None (occurrence: None)
  Receive Date: 20050315
  Receipt Date: 20050303
  Transmission Date: 20050727
  Serious: Yes (Death, Hospitalization)
  Sender: FDA-Public Use
  Company Number: JP-JNJFOC-20050200665

PATIENT
  Sex: Male
  Weight: 56.5 kg

DRUGS (11)
  1. REMICADE [Suspect]
     Route: 042
  2. REMICADE [Suspect]
     Route: 042
  3. REMICADE [Suspect]
     Dosage: THIS WAS THE THIRD INFUSION.
     Route: 042
  4. REMICADE [Suspect]
     Indication: RHEUMATOID ARTHRITIS
     Route: 042
  5. METHOTREXATE [Concomitant]
     Route: 049
  6. METHOTREXATE [Concomitant]
     Route: 049
  7. PREDNISOLONE [Concomitant]
     Route: 049
  8. VOLTAREN [Concomitant]
  9. FOLIAMIN [Concomitant]
     Route: 049
  10. CYTOTEC [Concomitant]
     Route: 049
  11. TAKEPRON [Concomitant]
     Route: 049

REACTIONS (18)
  - ANTINUCLEAR ANTIBODY POSITIVE [None]
  - APHASIA [None]
  - BLOOD PRESSURE DECREASED [None]
  - C-REACTIVE PROTEIN INCREASED [None]
  - CEREBRAL HAEMORRHAGE [None]
  - CEREBRAL INFARCTION [None]
  - COMPUTERISED TOMOGRAM ABNORMAL [None]
  - CSF TEST ABNORMAL [None]
  - CYTOMEGALOVIRUS ANTIBODY POSITIVE [None]
  - ENCEPHALITIS HERPES [None]
  - ENCEPHALITIS MENINGOCOCCAL [None]
  - GENERAL PHYSICAL HEALTH DETERIORATION [None]
  - HEMIPLEGIA [None]
  - HYPOAESTHESIA [None]
  - LUPUS-LIKE SYNDROME [None]
  - MENINGITIS TUBERCULOUS [None]
  - POLYARTERITIS NODOSA [None]
  - VARICELLA ZOSTER VIRUS SEROLOGY POSITIVE [None]
